FAERS Safety Report 7451363-4 (Version None)
Quarter: 2011Q2

REPORT INFORMATION
  Report Type: 
  Country: None (occurrence: None)
  Receive Date: 20110422
  Receipt Date: 20110414
  Transmission Date: 20111010
  Serious: Yes (Other)
  Sender: FDA-Public Use
  Company Number: 2011001758

PATIENT
  Age: 59 Year
  Sex: Male
  Weight: 90.4 kg

DRUGS (9)
  1. ERLOTINIB HYDROCHLORIDE [Suspect]
     Indication: NON-SMALL CELL LUNG CANCER
     Dosage: (150 MG,CYCLIC, DAYS 2-16),ORAL
     Route: 048
     Dates: start: 20100317, end: 20110408
  2. ALIMTA [Suspect]
     Indication: NON-SMALL CELL LUNG CANCER
     Dosage: (1030 MG,CYCLIC, DAY1),INTRAVENOUS
     Route: 042
     Dates: start: 20100317, end: 20110323
  3. LISINOPRIL [Concomitant]
  4. FERROUS GLUCONATE (FERROUS GLUCONATE) [Concomitant]
  5. FOLIC ACID [Concomitant]
  6. GLIPIZIDE [Concomitant]
  7. VITAMIN B12 [Concomitant]
  8. METFORMIN (METFORMIN) [Concomitant]
  9. DOXYCYCLINE [Concomitant]

REACTIONS (2)
  - WHITE BLOOD CELL COUNT DECREASED [None]
  - NEUTROPHIL COUNT DECREASED [None]
